FAERS Safety Report 6115391-3 (Version None)
Quarter: 2009Q1

REPORT INFORMATION
  Report Type: 
  Country: None (occurrence: None)
  Receive Date: 20090313
  Receipt Date: 20090309
  Transmission Date: 20090719
  Serious: Yes (Life-Threatening, Hospitalization, Other)
  Sender: FDA-Public Use
  Company Number: PHHY2009DE08996

PATIENT
  Age: 77 Year
  Sex: Female
  Weight: 95 kg

DRUGS (10)
  1. METOPROLOL TARTRATE [Suspect]
     Indication: HYPERTENSION
     Dosage: 100 MG, BID
     Route: 048
     Dates: start: 19990101
  2. GLIBENCLAMIDE [Suspect]
     Indication: TYPE 2 DIABETES MELLITUS
     Dosage: 1.75 MG/DAY
     Route: 048
     Dates: start: 20000101, end: 20080727
  3. ASS ^CT-ARZNEIMITTEL^ [Concomitant]
     Indication: ISCHAEMIC HEART DISEASE PROPHYLAXIS
     Dosage: 100 MG/DAY
     Route: 048
     Dates: start: 20020101
  4. PANTOZOL [Concomitant]
     Indication: PROPHYLAXIS AGAINST GASTROINTESTINAL ULCER
     Dosage: 40 MG/DAY
     Route: 048
     Dates: start: 20060101
  5. SIMVASTATIN [Concomitant]
     Indication: HYPERLIPIDAEMIA
     Dosage: 40 MG/DAY
     Route: 048
     Dates: start: 20020101
  6. XIPAMIDE [Concomitant]
     Indication: HYPERTENSION
     Dosage: 20 MG, BID
     Route: 048
     Dates: start: 20000101
  7. FURORESE [Concomitant]
     Indication: RENAL IMPAIRMENT
     Dosage: 10 MG/DAY
     Route: 048
     Dates: start: 20020101, end: 20080808
  8. LISINOPRIL [Concomitant]
     Indication: HYPERTENSION
     Dosage: 10 MG/DAY
     Route: 048
     Dates: start: 20030101, end: 20080727
  9. METFORMIN HCL [Concomitant]
     Indication: TYPE 2 DIABETES MELLITUS
     Dosage: 500 MG, BID
     Route: 048
     Dates: start: 19950101
  10. IMIPENEM [Concomitant]
     Dosage: UNK

REACTIONS (6)
  - CONFUSIONAL STATE [None]
  - GASTRITIS [None]
  - HYPOGLYCAEMIA [None]
  - INFECTION [None]
  - RENAL FAILURE ACUTE [None]
  - VITAMIN B12 DEFICIENCY [None]
